FAERS Safety Report 22940968 (Version 3)
Quarter: 2023Q4

REPORT INFORMATION
  Report Type: Report from Study
  Country: US (occurrence: US)
  Receive Date: 20230913
  Receipt Date: 20231205
  Transmission Date: 20240109
  Serious: No
  Sender: FDA-Public Use
  Company Number: US-002147023-NVSC2023US197855

PATIENT
  Age: 81 Year
  Sex: Female

DRUGS (1)
  1. PIQRAY [Suspect]
     Active Substance: ALPELISIB
     Indication: Hormone receptor positive HER2 negative breast cancer
     Dosage: UNK, QD
     Route: 048
     Dates: start: 20230814

REACTIONS (7)
  - Dry throat [Unknown]
  - Hypertension [Unknown]
  - Dehydration [Unknown]
  - Hyperglycaemia [Unknown]
  - Alopecia [Not Recovered/Not Resolved]
  - Dry mouth [Unknown]
  - Feeling abnormal [Unknown]

NARRATIVE: CASE EVENT DATE: 20230822
